FAERS Safety Report 6399105-8 (Version None)
Quarter: 2009Q4

REPORT INFORMATION
  Report Type: 
  Country: None (occurrence: None)
  Receive Date: 20091013
  Receipt Date: 20091007
  Transmission Date: 20100525
  Serious: Yes (Life-Threatening)
  Sender: FDA-Public Use
  Company Number: GB-MERCK-0910GBR00030

PATIENT
  Age: 60 Year
  Sex: Female
  Weight: 73 kg

DRUGS (4)
  1. COZAAR [Suspect]
     Indication: HYPERTENSION
     Route: 048
     Dates: start: 20090420, end: 20090911
  2. CALCIUM PHOSPHATE, TRIBASIC AND CHOLECALCIFEROL [Concomitant]
     Indication: OSTEOPOROSIS
     Route: 048
     Dates: start: 20080118
  3. LAMOTRIGINE [Concomitant]
     Indication: EPILEPSY
     Route: 048
     Dates: start: 20001115
  4. BECLOMETHASONE DIPROPIONATE [Concomitant]
     Indication: ASTHMA
     Dates: start: 20060726

REACTIONS (5)
  - DYSPNOEA [None]
  - JOINT SWELLING [None]
  - LIP SWELLING [None]
  - SWELLING FACE [None]
  - WEIGHT INCREASED [None]
